FAERS Safety Report 6996895-8 (Version None)
Quarter: 2010Q3

REPORT INFORMATION
  Report Type: 
  Country: None (occurrence: None)
  Receive Date: 20100918
  Receipt Date: 20090930
  Transmission Date: 20110219
  Serious: No
  Sender: FDA-Public Use
  Company Number: US-WYE-H10324709

PATIENT
  Sex: Female
  Weight: 56.3 kg

DRUGS (3)
  1. PRISTIQ [Suspect]
     Indication: DEPRESSION
     Route: 048
     Dates: start: 20090717
  2. TRAZODONE HCL [Concomitant]
  3. CELEXA [Suspect]
     Dosage: UNKNOWN
     Dates: start: 20090601, end: 20090717

REACTIONS (3)
  - BLOOD URINE [None]
  - URINE ODOUR ABNORMAL [None]
  - WEIGHT DECREASED [None]
